FAERS Safety Report 9341186 (Version 1)
Quarter: 2013Q2

REPORT INFORMATION
  Report Type: Spontaneous
  Country: BR (occurrence: BR)
  Receive Date: 20130611
  Receipt Date: 20130611
  Transmission Date: 20140414
  Serious: Yes (Hospitalization, Other)
  Sender: FDA-Public Use
  Company Number: BR-AMGEN-BRASP2012051458

PATIENT
  Age: 72 Year
  Sex: Female
  Weight: 57 kg

DRUGS (14)
  1. ENBREL [Suspect]
     Indication: RHEUMATOID ARTHRITIS
     Dosage: 50 MG, ONCE WEEKLY
     Route: 058
     Dates: start: 201204, end: 201205
  2. ENBREL [Suspect]
     Dosage: 50 MG, ONCE WEEKLY
     Route: 058
     Dates: start: 20120525, end: 20120811
  3. AMLODIPINE BESILATE [Concomitant]
     Indication: HYPERTENSION
     Dosage: 1 TABLET (5 MG), 1X/DAY
     Route: 048
  4. ENALAPRIL MALEATE [Concomitant]
     Indication: HYPERTENSION
     Dosage: 1 TABLET (10 MG), 1X/DAY
     Route: 048
  5. METHOTREXATE [Concomitant]
     Dosage: 2.5 MG, WEEKLY 6 TABLETS
     Route: 065
  6. ENDOFOLIN [Concomitant]
     Dosage: 5 MG, WEEKLY
     Route: 065
  7. METICORTEN [Concomitant]
     Dosage: 5 MG, 2X/DAY
     Route: 065
  8. CALTRATE                           /07357001/ [Concomitant]
     Indication: OSTEOPOROSIS
     Dosage: UNK
  9. DEPURA [Concomitant]
     Dosage: UNK
  10. BUSCOPAN [Concomitant]
     Dosage: UNK
  11. DORFLEX [Concomitant]
     Dosage: UNK
  12. ALENDRONATE SODIUM [Concomitant]
     Dosage: ONCE WEEKLY
  13. CALCIUM [Concomitant]
     Dosage: 600 MG, 1X/DAY
  14. NATURETTI [Concomitant]
     Dosage: UNK

REACTIONS (2)
  - Injection site bruising [Unknown]
  - Pneumonia [Unknown]
